FAERS Safety Report 16483360 (Version 1)
Quarter: 2019Q2

REPORT INFORMATION
  Report Type: Spontaneous
  Country: US (occurrence: US)
  Receive Date: 20190515
  Receipt Date: 20190515
  Transmission Date: 20190711
  Serious: Yes (Other)
  Sender: FDA-Public Use
  Company Number: None

PATIENT
  Age: 71 Year
  Sex: Male

DRUGS (2)
  1. RIVAROXABAN [Suspect]
     Active Substance: RIVAROXABAN
     Indication: ATRIAL FIBRILLATION
     Route: 048
  2. DRONEDARONE [Suspect]
     Active Substance: DRONEDARONE
     Route: 048

REACTIONS (5)
  - Dizziness [None]
  - Fatigue [None]
  - Dyspnoea [None]
  - Faeces discoloured [None]
  - Gastrointestinal angiectasia [None]

NARRATIVE: CASE EVENT DATE: 20180808
